FAERS Safety Report 22600582 (Version 1)
Quarter: 2023Q2

REPORT INFORMATION
  Report Type: Spontaneous
  Country: US (occurrence: US)
  Receive Date: 20230614
  Receipt Date: 20230614
  Transmission Date: 20230722
  Serious: No
  Sender: FDA-Public Use
  Company Number: US-BRISTOL-MYERS SQUIBB COMPANY-2023-082418

PATIENT
  Age: 29 Year
  Sex: Female
  Weight: 95.254 kg

DRUGS (6)
  1. KENALOG [Suspect]
     Active Substance: TRIAMCINOLONE ACETONIDE
     Indication: Exostosis
     Dosage: DOSE : 40 MG;     FREQ : ONCE
     Dates: start: 20220711
  2. KENALOG [Suspect]
     Active Substance: TRIAMCINOLONE ACETONIDE
     Indication: Limb injury
  3. MAGNESIUM GLYCINATE [Concomitant]
     Active Substance: MAGNESIUM GLYCINATE
     Indication: Product used for unknown indication
     Dosage: EVERY NIGHT.
  4. VITAMINS NOS [Concomitant]
     Active Substance: VITAMINS
     Indication: Product used for unknown indication
  5. CITALOPRAM [Concomitant]
     Active Substance: CITALOPRAM HYDROBROMIDE
     Indication: Product used for unknown indication
  6. BUSPIRONE [Concomitant]
     Active Substance: BUSPIRONE HYDROCHLORIDE
     Indication: Product used for unknown indication
     Dosage: BUSPIRONE - FOR A MONTH

REACTIONS (15)
  - Anxiety [Unknown]
  - Panic attack [Unknown]
  - Tremor [Unknown]
  - Palpitations [Unknown]
  - Decreased appetite [Unknown]
  - Paranoia [Unknown]
  - Blood luteinising hormone increased [Unknown]
  - Dehydroepiandrosterone increased [Unknown]
  - Blood glucose increased [Unknown]
  - Polycystic ovaries [Unknown]
  - Mood swings [Unknown]
  - Depression [Unknown]
  - Weight decreased [Unknown]
  - Heart rate increased [Unknown]
  - Off label use [Unknown]

NARRATIVE: CASE EVENT DATE: 20220801
